FAERS Safety Report 22035308 (Version 1)
Quarter: 2023Q1

REPORT INFORMATION
  Report Type: Spontaneous
  Country: US (occurrence: None)
  Receive Date: 20230222
  Receipt Date: 20230222
  Transmission Date: 20230417
  Serious: No
  Sender: FDA-Public Use
  Company Number: None

PATIENT
  Age: 15 Year
  Sex: Male

DRUGS (1)
  1. GLEEVEC [Suspect]
     Active Substance: IMATINIB MESYLATE
     Dosage: 100MG DAILY ORAL?
     Route: 048
     Dates: start: 202204

REACTIONS (1)
  - Pharyngitis streptococcal [None]

NARRATIVE: CASE EVENT DATE: 20230220
